FAERS Safety Report 20637371 (Version 3)
Quarter: 2022Q2

REPORT INFORMATION
  Report Type: Report from Study
  Country: CA (occurrence: CA)
  Receive Date: 20220325
  Receipt Date: 20220508
  Transmission Date: 20220721
  Serious: Yes (Death, Hospitalization)
  Sender: FDA-Public Use
  Company Number: CA-JNJFOC-20220339683

PATIENT
  Age: 83 Year
  Sex: Female

DRUGS (1)
  1. SIMPONI [Suspect]
     Active Substance: GOLIMUMAB
     Indication: Rheumatoid arthritis
     Route: 058

REACTIONS (4)
  - Death [Fatal]
  - Pneumonia [Unknown]
  - Incoherent [Unknown]
  - Carbon dioxide increased [Unknown]

NARRATIVE: CASE EVENT DATE: 20220101
